FAERS Safety Report 12304226 (Version 2)
Quarter: 2016Q4

REPORT INFORMATION
  Report Type: Spontaneous
  Country: US (occurrence: US)
  Receive Date: 20160426
  Receipt Date: 20161025
  Transmission Date: 20170207
  Serious: No
  Sender: FDA-Public Use
  Company Number: US-JNJFOC-20160412766

PATIENT
  Sex: Male

DRUGS (1)
  1. RISPERDAL [Suspect]
     Active Substance: RISPERIDONE
     Indication: ANXIETY
     Route: 048
     Dates: start: 200707, end: 20080728

REACTIONS (4)
  - Gynaecomastia [Unknown]
  - Off label use [Unknown]
  - Product use issue [Unknown]
  - Abnormal weight gain [Unknown]
